FAERS Safety Report 6250086-7 (Version None)
Quarter: 2009Q2

REPORT INFORMATION
  Report Type: 
  Country: None (occurrence: None)
  Receive Date: 20090625
  Receipt Date: 20090616
  Transmission Date: 20091009
  Serious: Yes (Death)
  Sender: FDA-Public Use
  Company Number: GXKR2009GB06984

PATIENT
  Age: 90 Year
  Sex: Female
  Weight: 39 kg

DRUGS (2)
  1. ALENDRONIC ACID (NGX) (ALENDRONIC ACID) UNKNOWN [Suspect]
     Indication: OSTEOPOROSIS
     Dosage: 70 MG, ORAL
     Route: 048
     Dates: end: 20090513
  2. ASPIRIN [Concomitant]

REACTIONS (3)
  - GASTRIC CANCER [None]
  - OESOPHAGEAL CARCINOMA [None]
  - SUDDEN DEATH [None]
